FAERS Safety Report 15121797 (Version 2)
Quarter: 2018Q4

REPORT INFORMATION
  Report Type: Report from Study
  Country: JP (occurrence: JP)
  Receive Date: 20180709
  Receipt Date: 20181228
  Transmission Date: 20190204
  Serious: Yes (Hospitalization)
  Sender: FDA-Public Use
  Company Number: JP-JNJFOC-20180706604

PATIENT
  Age: 51 Year
  Sex: Female
  Weight: 46 kg

DRUGS (24)
  1. REMICADE [Suspect]
     Active Substance: INFLIXIMAB
     Indication: BEHCET^S SYNDROME
     Route: 042
     Dates: start: 20161216, end: 20170210
  2. PREDONINE [Suspect]
     Active Substance: PREDNISOLONE
     Indication: BEHCET^S SYNDROME
     Route: 042
     Dates: start: 20160427, end: 20160512
  3. PREDONINE [Suspect]
     Active Substance: PREDNISOLONE
     Indication: BEHCET^S SYNDROME
     Route: 048
     Dates: end: 20160211
  4. PREDONINE [Suspect]
     Active Substance: PREDNISOLONE
     Indication: BEHCET^S SYNDROME
     Route: 048
     Dates: start: 20160311, end: 20160411
  5. FERROUS SULFATE. [Concomitant]
     Active Substance: FERROUS SULFATE
     Indication: ANAEMIA
     Route: 048
     Dates: start: 20160412, end: 20160421
  6. TRAMCET [Concomitant]
     Active Substance: ACETAMINOPHEN\TRAMADOL
     Indication: BEHCET^S SYNDROME
     Route: 048
     Dates: start: 20160415, end: 20160421
  7. INVEGA [Concomitant]
     Active Substance: PALIPERIDONE
     Indication: SCHIZOPHRENIA
     Dosage: BEFORE ADMINISTRATION OF ^REC^
     Route: 048
     Dates: end: 2016
  8. REMICADE [Suspect]
     Active Substance: INFLIXIMAB
     Indication: BEHCET^S SYNDROME
     Route: 042
     Dates: start: 20160129, end: 20160311
  9. PREDONINE [Suspect]
     Active Substance: PREDNISOLONE
     Indication: BEHCET^S SYNDROME
     Route: 048
     Dates: start: 20160615, end: 20160628
  10. PREDONINE [Suspect]
     Active Substance: PREDNISOLONE
     Indication: BEHCET^S SYNDROME
     Route: 048
     Dates: start: 20160212, end: 20160310
  11. EQUA [Concomitant]
     Active Substance: VILDAGLIPTIN
     Indication: DIABETES MELLITUS
     Route: 048
     Dates: start: 20160531
  12. BIO-THREE [Concomitant]
     Active Substance: HERBALS
     Indication: BEHCET^S SYNDROME
     Dosage: BEFORE ADMINISTRATION OF ^REC^
     Route: 048
     Dates: end: 20160427
  13. NEXIUM [Concomitant]
     Active Substance: ESOMEPRAZOLE MAGNESIUM
     Indication: PROPHYLAXIS
     Dosage: BEFORE ADMINISTRATION OF REC
     Route: 048
     Dates: end: 20160427
  14. PREDONINE [Suspect]
     Active Substance: PREDNISOLONE
     Indication: BEHCET^S SYNDROME
     Route: 048
     Dates: start: 20160412, end: 20160426
  15. GLUFAST [Concomitant]
     Active Substance: MITIGLINIDE
     Indication: DIABETES MELLITUS
     Route: 048
     Dates: start: 20160614
  16. REMICADE [Suspect]
     Active Substance: INFLIXIMAB
     Indication: BEHCET^S SYNDROME
     Route: 042
     Dates: start: 20160419
  17. PREDONINE [Suspect]
     Active Substance: PREDNISOLONE
     Indication: BEHCET^S SYNDROME
     Route: 042
     Dates: start: 20160526, end: 20160606
  18. PREDONINE [Suspect]
     Active Substance: PREDNISOLONE
     Indication: BEHCET^S SYNDROME
     Route: 048
     Dates: start: 20160607, end: 20160614
  19. IMURAN [Concomitant]
     Active Substance: AZATHIOPRINE
     Indication: BEHCET^S SYNDROME
     Route: 048
     Dates: start: 20161202
  20. CEREKINON [Concomitant]
     Active Substance: TRIMEBUTINE
     Indication: BEHCET^S SYNDROME
     Dosage: BEFORE ADMINISTRATION OF ^REC^
     Route: 048
     Dates: end: 20160427
  21. AZANIN [Suspect]
     Active Substance: AZATHIOPRINE
     Indication: BEHCET^S SYNDROME
     Route: 048
     Dates: start: 20160517, end: 20160627
  22. AZANIN [Suspect]
     Active Substance: AZATHIOPRINE
     Indication: BEHCET^S SYNDROME
     Route: 048
     Dates: start: 20160628, end: 20161201
  23. PREDONINE [Suspect]
     Active Substance: PREDNISOLONE
     Indication: BEHCET^S SYNDROME
     Route: 042
     Dates: start: 20160513, end: 20160525
  24. ACTONEL [Concomitant]
     Active Substance: RISEDRONATE SODIUM
     Indication: PROPHYLAXIS
     Route: 048
     Dates: start: 20160517

REACTIONS (2)
  - Schizophrenia [Unknown]
  - Herpes zoster [Recovered/Resolved]

NARRATIVE: CASE EVENT DATE: 20160614
